FAERS Safety Report 7229912-0 (Version None)
Quarter: 2011Q1

REPORT INFORMATION
  Report Type: 
  Country: None (occurrence: None)
  Receive Date: 20110117
  Receipt Date: 20110106
  Transmission Date: 20110831
  Serious: Yes (Death, Hospitalization, Other)
  Sender: FDA-Public Use
  Company Number: US-BAXTER-2011BH000202

PATIENT
  Age: 57 Year
  Sex: Male

DRUGS (2)
  1. DIANEAL [Suspect]
     Indication: PERITONEAL DIALYSIS
     Route: 033
     Dates: end: 20110104
  2. DIANEAL [Suspect]
     Indication: PERITONEAL DIALYSIS
     Route: 033
     Dates: end: 20110104

REACTIONS (6)
  - MYOCARDIAL INFARCTION [None]
  - GASTROINTESTINAL HAEMORRHAGE [None]
  - CARDIAC DISORDER [None]
  - CARDIAC FAILURE [None]
  - HEPATIC FAILURE [None]
  - HAEMORRHAGE [None]
